FAERS Safety Report 6542666-6 (Version None)
Quarter: 2010Q1

REPORT INFORMATION
  Report Type: 
  Country: None (occurrence: None)
  Receive Date: 20100119
  Receipt Date: 20100108
  Transmission Date: 20100710
  Serious: Yes (Hospitalization)
  Sender: FDA-Public Use
  Company Number: FR-BAXTER-2009BH019484

PATIENT
  Age: 13 Year
  Sex: Female

DRUGS (5)
  1. UROMITEXAN BAXTER [Suspect]
     Indication: PROPHYLAXIS
     Dosage: DOSE UNIT:GRAMS PER METERS SQUARED
     Route: 042
     Dates: start: 20091214, end: 20091218
  2. HOLOXAN BAXTER [Suspect]
     Indication: BONE SARCOMA
     Dosage: DOSE UNIT:GRAMS PER METERS SQUARED
     Route: 042
     Dates: start: 20091214, end: 20091215
  3. ETOPOSIDE [Suspect]
     Indication: BONE SARCOMA
     Route: 042
     Dates: start: 20091214, end: 20091218
  4. ZOPHREN [Concomitant]
     Indication: PROPHYLAXIS OF NAUSEA AND VOMITING
     Route: 042
     Dates: start: 20091214, end: 20091218
  5. METHYLENE BLUE [Concomitant]
     Indication: DRUG TOXICITY PROPHYLAXIS
     Route: 042
     Dates: start: 20091214, end: 20091218

REACTIONS (1)
  - TOXIC ENCEPHALOPATHY [None]
